FAERS Safety Report 24175470 (Version 1)
Quarter: 2024Q3

REPORT INFORMATION
  Report Type: Spontaneous
  Country: US (occurrence: US)
  Receive Date: 20240805
  Receipt Date: 20240805
  Transmission Date: 20241017
  Serious: No
  Sender: EVOKE PHARMA
  Company Number: US-EVOKE PHARMA, INC.-2023EVO000123

PATIENT

DRUGS (1)
  1. GIMOTI [Suspect]
     Active Substance: METOCLOPRAMIDE HYDROCHLORIDE
     Indication: Abdominal discomfort
     Dosage: 15 MILLIGRAM, 1 SPRAY IN ONE NOSTRIL TWICE DAILY 30 MINUTES BEFORE MEALS.
     Route: 045
     Dates: start: 2022, end: 20230714

REACTIONS (2)
  - Bruxism [Recovering/Resolving]
  - Headache [Recovering/Resolving]

NARRATIVE: CASE EVENT DATE: 20230701
